FAERS Safety Report 19732330 (Version 1)
Quarter: 2021Q3

REPORT INFORMATION
  Report Type: Spontaneous
  Country: NL (occurrence: NL)
  Receive Date: 20210822
  Receipt Date: 20210822
  Transmission Date: 20211014
  Serious: Yes (Other)
  Sender: FDA-Public Use
  Company Number: NL-AUROBINDO-AUR-APL-2021-035065

PATIENT
  Age: 56 Year
  Sex: Male

DRUGS (2)
  1. ENOXIMONE [Suspect]
     Active Substance: ENOXIMONE
     Indication: HAEMODYNAMIC INSTABILITY
     Dosage: 1 ?G/KG/MIN
     Route: 065
  2. AMIODARONE [Suspect]
     Active Substance: AMIODARONE
     Indication: HAEMODYNAMIC INSTABILITY
     Dosage: 600 MILLIGRAM, ONCE A DAY
     Route: 065

REACTIONS (1)
  - Drug ineffective for unapproved indication [Unknown]
